FAERS Safety Report 5167860-0 (Version None)
Quarter: 2006Q4

REPORT INFORMATION
  Report Type: 
  Country: None (occurrence: None)
  Receive Date: 20061206
  Receipt Date: 20061206
  Transmission Date: 20070319
  Serious: No
  Sender: FDA-Public Use
  Company Number: None

PATIENT
  Sex: Male
  Weight: 68.2 kg

DRUGS (2)
  1. ERBITUX [Suspect]
     Indication: NEOPLASM MALIGNANT
     Dosage: 458 MG IV / WEEKLY
     Route: 042
     Dates: start: 20061007
  2. CISPLATIN [Suspect]
     Indication: NEOPLASM MALIGNANT
     Dosage: 55MG  IV / WEEKLY
     Route: 042
     Dates: start: 20061017

REACTIONS (3)
  - DYSPHAGIA [None]
  - NAUSEA [None]
  - STOMATITIS [None]
